FAERS Safety Report 10864862 (Version 17)
Quarter: 2025Q1

REPORT INFORMATION
  Report Type: Report from Study
  Country: BR (occurrence: BR)
  Receive Date: 20150224
  Receipt Date: 20250127
  Transmission Date: 20250408
  Serious: Yes (Other)
  Sender: GLAXOSMITHKLINE
  Company Number: BR-GLAXOSMITHKLINE-BR2015GSK023439

PATIENT

DRUGS (5)
  1. BELIMUMAB [Suspect]
     Active Substance: BELIMUMAB
     Indication: Systemic lupus erythematosus
     Route: 042
     Dates: start: 20141025
  2. BELIMUMAB [Suspect]
     Active Substance: BELIMUMAB
     Dosage: UNK UNK, Q4W (6 X 120 MG)
     Route: 042
  3. BELIMUMAB [Suspect]
     Active Substance: BELIMUMAB
     Dosage: UNK UNK, Q4W (7 X 120 MG)
     Route: 042
  4. CYCLOPHOSPHAMIDE [Concomitant]
     Active Substance: CYCLOPHOSPHAMIDE
     Indication: Product used for unknown indication
     Dates: start: 2000
  5. INFLUENZA VIRUS VACCINE [Concomitant]
     Active Substance: INFLUENZA VIRUS VACCINE
     Indication: Influenza
     Dates: start: 202206

REACTIONS (17)
  - Renal impairment [Recovered/Resolved]
  - Nephritis [Unknown]
  - Protein urine present [Recovered/Resolved]
  - Condition aggravated [Recovered/Resolved]
  - Onychoclasis [Recovered/Resolved]
  - Alopecia [Recovered/Resolved]
  - Skin wound [Recovered/Resolved]
  - Overweight [Recovered/Resolved]
  - Erythema [Unknown]
  - Tooth fracture [Unknown]
  - Influenza [Recovered/Resolved]
  - Pain [Recovered/Resolved]
  - Therapeutic response unexpected [Unknown]
  - Product dose omission issue [Unknown]
  - Drug ineffective [Unknown]
  - Inappropriate schedule of product administration [Unknown]
  - Circumstance or information capable of leading to medication error [Unknown]

NARRATIVE: CASE EVENT DATE: 20180801
